FAERS Safety Report 23635084 (Version 1)
Quarter: 2024Q1

REPORT INFORMATION
  Report Type: Spontaneous
  Country: DE (occurrence: DE)
  Receive Date: 20240315
  Receipt Date: 20240315
  Transmission Date: 20240409
  Serious: Yes (Other)
  Sender: FDA-Public Use
  Company Number: None

PATIENT
  Age: 41 Year
  Sex: Male
  Weight: 127 kg

DRUGS (1)
  1. CIPROFLOXACIN [Suspect]
     Active Substance: CIPROFLOXACIN
     Indication: Pharyngitis
     Dosage: 1 IN THE MORNING, 1 IN THE EVENING
     Route: 048
     Dates: start: 20240127, end: 20240129

REACTIONS (11)
  - Bradycardia [Unknown]
  - Hypoaesthesia [Unknown]
  - Tendon pain [Recovered/Resolved with Sequelae]
  - Palpitations [Recovering/Resolving]
  - Myalgia [Recovered/Resolved with Sequelae]
  - Anxiety [Unknown]
  - Blood pressure increased [Unknown]
  - Restlessness [Unknown]
  - Presyncope [Unknown]
  - Palpitations [Unknown]
  - Headache [Unknown]

NARRATIVE: CASE EVENT DATE: 20240101
